FAERS Safety Report 7492237-2 (Version None)
Quarter: 2011Q2

REPORT INFORMATION
  Report Type: 
  Country: None (occurrence: None)
  Receive Date: 20110519
  Receipt Date: 20101214
  Transmission Date: 20111010
  Serious: No
  Sender: FDA-Public Use
  Company Number: US-NOVEN-ALL1-2010-06475

PATIENT
  Age: 11 Year
  Sex: Male
  Weight: 38.549 kg

DRUGS (2)
  1. DAYTRANA [Suspect]
     Indication: ATTENTION DEFICIT/HYPERACTIVITY DISORDER
     Dosage: 10 MG, 1X/DAY:QD
     Route: 062
     Dates: start: 20090901
  2. ABILIFY [Concomitant]
     Dosage: UNK

REACTIONS (2)
  - NEGATIVISM [None]
  - EMOTIONAL DISTRESS [None]
